FAERS Safety Report 10433147 (Version 3)
Quarter: 2015Q1

REPORT INFORMATION
  Report Type: Spontaneous
  Country: GB (occurrence: GB)
  Receive Date: 20140905
  Receipt Date: 20150324
  Transmission Date: 20150720
  Serious: Yes (Hospitalization, Other)
  Sender: FDA-Public Use
  Company Number: GB-WATSON-2014-19112

PATIENT
  Age: 80 Year
  Sex: Male
  Weight: 78.3 kg

DRUGS (6)
  1. TORISEL [Interacting]
     Active Substance: TEMSIROLIMUS
     Indication: PRODUCT USED FOR UNKNOWN INDICATION
     Dosage: 10 MG, UNKNOWN
     Dates: start: 20140724
  2. GEMCITABINE [Concomitant]
     Active Substance: GEMCITABINE\GEMCITABINE HYDROCHLORIDE
     Indication: PRODUCT USED FOR UNKNOWN INDICATION
     Dosage: 1900 MG, UNKNOWN
     Dates: start: 20140724
  3. NICORANDIL [Concomitant]
     Active Substance: NICORANDIL
     Indication: PRODUCT USED FOR UNKNOWN INDICATION
     Dosage: 5 MG, DAILY
     Route: 048
  4. MOTILIUM [Interacting]
     Active Substance: DOMPERIDONE
     Indication: PRODUCT USED FOR UNKNOWN INDICATION
     Dosage: 40 MG, QID
     Route: 048
     Dates: start: 20140724
  5. CISPLATIN. [Concomitant]
     Active Substance: CISPLATIN
     Indication: PRODUCT USED FOR UNKNOWN INDICATION
     Dosage: 134 MG, UNKNOWN
     Route: 065
     Dates: start: 20140724
  6. AMLODIPINE [Suspect]
     Active Substance: AMLODIPINE BESYLATE
     Indication: PRODUCT USED FOR UNKNOWN INDICATION
     Dosage: 10 MG, DAILY
     Route: 048
     Dates: start: 20140724

REACTIONS (6)
  - Drug interaction [Unknown]
  - Syncope [Recovered/Resolved]
  - Loss of consciousness [Unknown]
  - Incorrect dose administered [Unknown]
  - Hypotension [Unknown]
  - Bradycardia [Unknown]

NARRATIVE: CASE EVENT DATE: 20140731
